FAERS Safety Report 4887587-X (Version None)
Quarter: 2006Q1

REPORT INFORMATION
  Report Type: 
  Country: None (occurrence: None)
  Receive Date: 20060119
  Receipt Date: 20060119
  Transmission Date: 20060701
  Serious: Yes (Hospitalization)
  Sender: FDA-Public Use
  Company Number: None

PATIENT
  Age: 60 Year
  Sex: Male
  Weight: 88.905 kg

DRUGS (3)
  1. METFORMIN [Suspect]
     Indication: DIABETES MELLITUS NON-INSULIN-DEPENDENT
     Dosage: 1000 MG BID (PO)
     Route: 048
     Dates: start: 20050829, end: 20051001
  2. LISINOPRIL [Suspect]
     Indication: CORONARY ARTERY DISEASE
     Dosage: 40 MG PO
     Route: 048
     Dates: start: 20050829, end: 20051001
  3. LISINOPRIL [Suspect]
     Indication: HYPERTENSION
     Dosage: 40 MG PO
     Route: 048
     Dates: start: 20050829, end: 20051001

REACTIONS (3)
  - DEHYDRATION [None]
  - MUSCLE DISORDER [None]
  - RENAL FAILURE ACUTE [None]
